FAERS Safety Report 7671059-3 (Version None)
Quarter: 2011Q3

REPORT INFORMATION
  Report Type: 
  Country: None (occurrence: None)
  Receive Date: 20110803
  Receipt Date: 20110719
  Transmission Date: 20111222
  Serious: Yes (Death)
  Sender: FDA-Public Use
  Company Number: 2011-306

PATIENT
  Age: 46 Year
  Sex: Female

DRUGS (4)
  1. BENZTROPINE MESYLATE [Concomitant]
  2. FAZACLO ODT [Suspect]
     Dosage: 600 MG, QD, ORAL
     Route: 048
     Dates: start: 20100517, end: 20110530
  3. LESSINA (ETHINYLESTRADIOL, LEVONORGESTREL) [Concomitant]
  4. VALPROIC ACID [Concomitant]

REACTIONS (1)
  - HOSPICE CARE [None]
